FAERS Safety Report 20111439 (Version 2)
Quarter: 2021Q4

REPORT INFORMATION
  Report Type: Report from Study
  Country: ES (occurrence: None)
  Receive Date: 20211125
  Receipt Date: 20211231
  Transmission Date: 20220303
  Serious: Yes (Hospitalization)
  Sender: FDA-Public Use
  Company Number: ES-ROCHE-2960812

PATIENT
  Age: 65 Year
  Sex: Female
  Weight: 73.4 kg

DRUGS (5)
  1. ATEZOLIZUMAB [Suspect]
     Active Substance: ATEZOLIZUMAB
     Indication: Hepatocellular carcinoma
     Dosage: ON 28/OCT/2021, SHE RECEIVED LAST DOSE OF ATEZOLIZUMAB PRIOR TO EVENT.
     Route: 041
     Dates: start: 20210901
  2. BEVACIZUMAB [Suspect]
     Active Substance: BEVACIZUMAB
     Indication: Hepatocellular carcinoma
     Dosage: ON 28/OCT/2021, SHE RECEIVED LAST DOSE OF BEVACIZUMAB PRIOR TO EVENT.
     Route: 042
     Dates: start: 20210901
  3. METHIMAZOLE [Concomitant]
     Active Substance: METHIMAZOLE
     Indication: Hyperthyroidism
     Route: 048
  4. METHIMAZOLE [Concomitant]
     Active Substance: METHIMAZOLE
     Indication: Hyperthyroidism
     Route: 048
  5. LEVOTHYROXINE [Concomitant]
     Active Substance: LEVOTHYROXINE
     Indication: Immune-mediated hyperthyroidism
     Route: 048
     Dates: start: 20211101

REACTIONS (1)
  - Encephalopathy [Recovered/Resolved]

NARRATIVE: CASE EVENT DATE: 20211116
